FAERS Safety Report 5244394-6 (Version None)
Quarter: 2007Q1

REPORT INFORMATION
  Report Type: 
  Country: None (occurrence: None)
  Receive Date: 20070222
  Receipt Date: 20070208
  Transmission Date: 20070707
  Serious: Yes (Other)
  Sender: FDA-Public Use
  Company Number: JP-PFIZER INC-2007008759

PATIENT
  Age: 71 Year
  Sex: Male

DRUGS (1)
  1. UNASYN [Suspect]
     Indication: PNEUMONIA
     Route: 042
     Dates: start: 20070116, end: 20070123

REACTIONS (1)
  - HAEMATOCHEZIA [None]
